FAERS Safety Report 11424603 (Version 1)
Quarter: 2015Q3

REPORT INFORMATION
  Report Type: Spontaneous
  Country: FR (occurrence: FR)
  Receive Date: 20150827
  Receipt Date: 20150827
  Transmission Date: 20151125
  Serious: Yes (Hospitalization)
  Sender: FDA-Public Use
  Company Number: FR-ASTRAZENECA-2015SE81261

PATIENT
  Age: 32057 Day
  Sex: Female

DRUGS (4)
  1. ZYLORIC [Interacting]
     Active Substance: ALLOPURINOL
     Indication: GOUT
     Route: 048
  2. COUMADINE [Suspect]
     Active Substance: WARFARIN SODIUM
     Indication: ARRHYTHMIA
     Route: 048
     Dates: end: 20150804
  3. CRESTOR [Interacting]
     Active Substance: ROSUVASTATIN CALCIUM
     Indication: HYPERCHOLESTEROLAEMIA
     Route: 048
  4. CORDARONE [Interacting]
     Active Substance: AMIODARONE HYDROCHLORIDE
     Indication: ARRHYTHMIA
     Route: 048

REACTIONS (4)
  - Haematoma [Recovered/Resolved]
  - Injury [Unknown]
  - Drug interaction [Recovered/Resolved]
  - Road traffic accident [Unknown]

NARRATIVE: CASE EVENT DATE: 20150727
